FAERS Safety Report 17845386 (Version 1)
Quarter: 2020Q2

REPORT INFORMATION
  Report Type: Spontaneous
  Country: MX (occurrence: MX)
  Receive Date: 20200601
  Receipt Date: 20200601
  Transmission Date: 20200714
  Serious: Yes (Hospitalization, Other)
  Sender: FDA-Public Use
  Company Number: MX-LEADINGPHARMA-MX-2020LEALIT00077

PATIENT
  Age: 17 Year
  Sex: Female

DRUGS (1)
  1. FUROSEMIDE TABLETS USP [Suspect]
     Active Substance: FUROSEMIDE
     Indication: MITRAL VALVE INCOMPETENCE
     Route: 065

REACTIONS (8)
  - Renal tubular necrosis [Unknown]
  - Anuria [None]
  - Blood sodium decreased [None]
  - Acute kidney injury [Unknown]
  - Metabolic alkalosis [None]
  - Blood chloride decreased [None]
  - Oliguria [Recovered/Resolved]
  - Blood potassium decreased [None]
